FAERS Safety Report 20506906 (Version 1)
Quarter: 2022Q1

REPORT INFORMATION
  Report Type: Spontaneous
  Country: GB (occurrence: GB)
  Receive Date: 20220223
  Receipt Date: 20220223
  Transmission Date: 20220423
  Serious: Yes (Hospitalization, Disabling)
  Sender: FDA-Public Use
  Company Number: None

PATIENT
  Sex: Female

DRUGS (1)
  1. OMEPRAZOLE [Suspect]
     Active Substance: OMEPRAZOLE

REACTIONS (5)
  - Pain in extremity [Unknown]
  - Peripheral swelling [Unknown]
  - Erythema [Unknown]
  - Arthralgia [Unknown]
  - Pain in extremity [Unknown]
